FAERS Safety Report 16551820 (Version 6)
Quarter: 2019Q3

REPORT INFORMATION
  Report Type: Spontaneous
  Country: BR (occurrence: BR)
  Receive Date: 20190710
  Receipt Date: 20190807
  Transmission Date: 20191004
  Serious: Yes (Hospitalization, Other)
  Sender: FDA-Public Use
  Company Number: BR-PFIZER INC-2018357592

PATIENT
  Age: 60 Year
  Sex: Female
  Weight: 74 kg

DRUGS (8)
  1. LYRICA [Suspect]
     Active Substance: PREGABALIN
     Indication: MYALGIA
     Dosage: 75 MG, DAILY (AT 8PM)
     Dates: start: 2018, end: 20190606
  2. LYRICA [Suspect]
     Active Substance: PREGABALIN
     Indication: FIBROMYALGIA
  3. PANTOPRAZOLE [Suspect]
     Active Substance: PANTOPRAZOLE
     Indication: OESOPHAGITIS
     Dosage: UNK
  4. PURAN [Concomitant]
     Active Substance: LEVOTHYROXINE SODIUM
     Indication: HYPOTHYROIDISM
     Dosage: UNK
     Dates: start: 1989
  5. CITALOPRAM [Concomitant]
     Active Substance: CITALOPRAM HYDROBROMIDE
     Dosage: UNK
  6. LYRICA [Suspect]
     Active Substance: PREGABALIN
     Indication: SJOGREN^S SYNDROME
  7. PANTOPRAZOLE [Suspect]
     Active Substance: PANTOPRAZOLE
     Indication: ABDOMINAL PAIN UPPER
  8. ZETRON [Concomitant]
     Indication: DEPRESSION
     Dosage: UNK

REACTIONS (33)
  - Dry skin [Unknown]
  - Paraesthesia [Unknown]
  - Emotional disorder [Unknown]
  - Mass [Unknown]
  - Joint injury [Unknown]
  - Feeling hot [Not Recovered/Not Resolved]
  - Labyrinthitis [Unknown]
  - Nausea [Not Recovered/Not Resolved]
  - Dizziness [Not Recovered/Not Resolved]
  - Sepsis [Unknown]
  - Abdominal injury [Unknown]
  - Anxiety [Unknown]
  - Stress [Unknown]
  - Skin haemorrhage [Unknown]
  - Depression [Unknown]
  - Injury [Unknown]
  - Gait disturbance [Unknown]
  - Head injury [Recovered/Resolved]
  - Vision blurred [Not Recovered/Not Resolved]
  - Arthralgia [Not Recovered/Not Resolved]
  - Haemorrhage [Recovered/Resolved]
  - Fall [Recovered/Resolved]
  - Pyrexia [Not Recovered/Not Resolved]
  - Erythema [Unknown]
  - Asthenia [Unknown]
  - Vomiting [Not Recovered/Not Resolved]
  - Pruritus [Unknown]
  - Irritability [Unknown]
  - Malaise [Recovered/Resolved]
  - Inner ear disorder [Not Recovered/Not Resolved]
  - Tinnitus [Unknown]
  - Visual impairment [Not Recovered/Not Resolved]
  - Abdominal pain upper [Not Recovered/Not Resolved]

NARRATIVE: CASE EVENT DATE: 20190503
